FAERS Safety Report 4878455-8 (Version None)
Quarter: 2005Q4

REPORT INFORMATION
  Report Type: 
  Country: None (occurrence: None)
  Receive Date: 20051209
  Receipt Date: 20050422
  Transmission Date: 20060501
  Serious: Yes (Other)
  Sender: FDA-Public Use
  Company Number: USA-2005-0019963

PATIENT
  Age: 48 Year
  Sex: Male

DRUGS (2)
  1. OXYCONTIN [Suspect]
     Indication: PAIN
     Dosage: 80 MG, Q8H, ORAL
     Route: 048
     Dates: start: 20021211, end: 20050419
  2. FENTANYL [Suspect]

REACTIONS (1)
  - DRUG DEPENDENCE [None]
